FAERS Safety Report 9317125 (Version 1)
Quarter: 2013Q2

REPORT INFORMATION
  Report Type: Spontaneous
  Country: US (occurrence: None)
  Receive Date: 20130528
  Receipt Date: 20130528
  Transmission Date: 20140414
  Serious: Yes (Other)
  Sender: FDA-Public Use
  Company Number: None

PATIENT
  Age: 44 Year
  Sex: Female
  Weight: 53.75 kg

DRUGS (1)
  1. DOCETAXEL [Suspect]
     Indication: BREAST CANCER
     Dosage: Q21 DAYS
     Route: 042
     Dates: start: 20130326, end: 20130416

REACTIONS (3)
  - Infusion site pain [None]
  - Infusion site bruising [None]
  - Infusion site discolouration [None]
